FAERS Safety Report 8181641 (Version 4)
Quarter: 2016Q4

REPORT INFORMATION
  Report Type: Report from Study
  Country: CA (occurrence: CA)
  Receive Date: 20111014
  Receipt Date: 20161216
  Transmission Date: 20170207
  Serious: Yes (Hospitalization)
  Sender: FDA-Public Use
  Company Number: CA-UCBSA-043107

PATIENT
  Age: 22 Year
  Sex: Female
  Weight: 63.5 kg

DRUGS (7)
  1. DEXTROMETHORPHAN [Concomitant]
     Active Substance: DEXTROMETHORPHAN
     Indication: COUGH
     Dosage: UNK
     Dates: start: 2011
  2. TEVA-KETOROLAC [Concomitant]
     Indication: RHEUMATOID ARTHRITIS
     Dosage: 10 MG, 2X/DAY (BID)
     Route: 048
  3. CERTOLIZUMAB PEGOL RA [Suspect]
     Active Substance: CERTOLIZUMAB PEGOL
     Dosage: UNK
     Dates: start: 20120124
  4. CERTOLIZUMAB PEGOL RA [Suspect]
     Active Substance: CERTOLIZUMAB PEGOL
     Indication: RHEUMATOID ARTHRITIS
     Dosage: THE EXPIRY DATE FOR LOT NUMBER 60498 IS ??/NOV/2013
     Route: 058
     Dates: start: 20101104
  5. PANTOLOC [Concomitant]
     Active Substance: PANTOPRAZOLE SODIUM
     Dosage: 40 MG, ONCE DAILY (QD)
     Route: 048
  6. CALCIUM [Concomitant]
     Active Substance: CALCIUM
     Dosage: UNK UNK, ONCE DAILY (QD)
     Route: 048
  7. TRICYCLIN [Concomitant]
     Dosage: UNK UNK, ONCE DAILY (QD)
     Route: 048

REACTIONS (8)
  - Abdominal pain lower [Not Recovered/Not Resolved]
  - Conjunctivitis [Recovered/Resolved]
  - Rheumatoid arthritis [Recovering/Resolving]
  - Urinary tract infection [Recovering/Resolving]
  - Ear disorder [Recovered/Resolved]
  - Viral infection [Not Recovered/Not Resolved]
  - Uveitis [Recovered/Resolved]
  - Eye infection [Not Recovered/Not Resolved]

NARRATIVE: CASE EVENT DATE: 201110
